FAERS Safety Report 9133198 (Version 1)
Quarter: 2013Q1

REPORT INFORMATION
  Report Type: Spontaneous
  Country: CN (occurrence: CN)
  Receive Date: 20130116
  Receipt Date: 20130116
  Transmission Date: 20140127
  Serious: Yes (Other)
  Sender: FDA-Public Use
  Company Number: PHHY2012CN124276

PATIENT
  Age: 75 Year
  Sex: Female
  Weight: 68 kg

DRUGS (1)
  1. TEGRETOL [Suspect]
     Indication: NEURITIS
     Dosage: 0.1 G, QD
     Dates: start: 20100107, end: 20100210

REACTIONS (5)
  - Rash maculo-papular [Recovered/Resolved]
  - Pruritus generalised [Recovered/Resolved]
  - Swelling face [Recovered/Resolved]
  - Lip swelling [Recovered/Resolved]
  - Erythema [Recovered/Resolved]
